FAERS Safety Report 5540655-1 (Version None)
Quarter: 2007Q4

REPORT INFORMATION
  Report Type: 
  Country: None (occurrence: None)
  Receive Date: 20071129
  Receipt Date: 20070917
  Transmission Date: 20080405
  Serious: Yes (Other)
  Sender: FDA-Public Use
  Company Number: US200709004235

PATIENT
  Age: 38 Year
  Sex: Male

DRUGS (5)
  1. ZYPREXA [Suspect]
     Dosage: 20 MG,
  2. COGENTIN [Concomitant]
  3. DANTROLENE SODIUM [Concomitant]
  4. HALDOL (HALOPERIDOL DECANOATE) [Concomitant]
  5. ATIVAN [Concomitant]

REACTIONS (5)
  - BODY TEMPERATURE INCREASED [None]
  - HYPERTENSION [None]
  - MUSCLE RIGIDITY [None]
  - NEUROLEPTIC MALIGNANT SYNDROME [None]
  - TACHYCARDIA [None]
